FAERS Safety Report 15537468 (Version 1)
Quarter: 2018Q4

REPORT INFORMATION
  Report Type: Spontaneous
  Country: US (occurrence: US)
  Receive Date: 20181016
  Receipt Date: 20181016
  Transmission Date: 20190205
  Serious: No
  Sender: FDA-Public Use
  Company Number: None

PATIENT
  Age: 32 Year
  Sex: Female

DRUGS (1)
  1. COPAXONE [Suspect]
     Active Substance: GLATIRAMER ACETATE
     Indication: MULTIPLE SCLEROSIS
     Dates: start: 201809

REACTIONS (5)
  - Accidental exposure to product [None]
  - Eye irritation [None]
  - Paraesthesia oral [None]
  - Hypoaesthesia oral [None]
  - Visual impairment [None]

NARRATIVE: CASE EVENT DATE: 20181015
